FAERS Safety Report 13865855 (Version 2)
Quarter: 2017Q3

REPORT INFORMATION
  Report Type: Report from Study
  Country: TW (occurrence: TW)
  Receive Date: 20170814
  Receipt Date: 20170912
  Transmission Date: 20171127
  Serious: Yes (Hospitalization, Other)
  Sender: FDA-Public Use
  Company Number: PHHY2017TW113783

PATIENT
  Age: 77 Year
  Sex: Female
  Weight: 53.6 kg

DRUGS (51)
  1. EXJADE [Suspect]
     Active Substance: DEFERASIROX
     Indication: MYELODYSPLASTIC SYNDROME
     Dosage: 1250 MG, UNK
     Route: 048
     Dates: start: 20160512, end: 20160831
  2. HYDROCORTISONE. [Concomitant]
     Active Substance: HYDROCORTISONE
     Indication: PROPHYLAXIS
     Dosage: 100 MG, UNK
     Route: 042
     Dates: start: 20160721, end: 20160721
  3. HYDROCORTISONE. [Concomitant]
     Active Substance: HYDROCORTISONE
     Dosage: 100 MG, UNK
     Route: 042
     Dates: start: 20161201, end: 20161201
  4. IWELL [Concomitant]
     Indication: CHRONIC GASTRITIS
     Dosage: 1 DF, UNK
     Route: 048
     Dates: start: 20160218
  5. OTILONIUM [Concomitant]
     Indication: PROPHYLAXIS
     Dosage: 40 MG, UNK
     Route: 048
     Dates: start: 20161229, end: 20170112
  6. VITA-B6 [Concomitant]
     Indication: ANAEMIA
     Dosage: 50 MG, UNK
     Route: 048
     Dates: start: 20160121, end: 20160804
  7. CHLORPHENAMINE [Concomitant]
     Active Substance: CHLORPHENIRAMINE MALEATE
     Dosage: 5 MG, UNK
     Route: 042
     Dates: start: 20170406, end: 20170406
  8. FUROSEMIDE. [Concomitant]
     Active Substance: FUROSEMIDE
     Dosage: 40 MG, UNK
     Route: 048
     Dates: start: 20161124, end: 20161130
  9. HYDROCORTISONE. [Concomitant]
     Active Substance: HYDROCORTISONE
     Dosage: 100 MG, UNK
     Route: 042
     Dates: start: 20161013, end: 20161013
  10. HYDROCORTISONE. [Concomitant]
     Active Substance: HYDROCORTISONE
     Dosage: 100 MG, UNK
     Route: 042
     Dates: start: 20161222, end: 20161222
  11. HYDROCORTISONE. [Concomitant]
     Active Substance: HYDROCORTISONE
     Dosage: 100 MG, UNK
     Route: 042
     Dates: start: 20170309, end: 20170309
  12. HYDROCORTISONE. [Concomitant]
     Active Substance: HYDROCORTISONE
     Dosage: 100 MG, UNK
     Route: 042
     Dates: start: 20170323, end: 20170323
  13. CHLORPHENAMINE [Concomitant]
     Active Substance: CHLORPHENIRAMINE MALEATE
     Indication: PROPHYLAXIS
     Dosage: 5 MG, UNK
     Route: 042
     Dates: start: 20161201, end: 20161201
  14. CHLORPHENAMINE [Concomitant]
     Active Substance: CHLORPHENIRAMINE MALEATE
     Dosage: 5 MG, UNK
     Route: 042
     Dates: start: 20161222, end: 20161222
  15. CHLORPHENAMINE [Concomitant]
     Active Substance: CHLORPHENIRAMINE MALEATE
     Dosage: 5 MG, UNK
     Route: 042
     Dates: start: 20170202, end: 20170202
  16. CHLORPHENAMINE [Concomitant]
     Active Substance: CHLORPHENIRAMINE MALEATE
     Dosage: 5 MG, UNK
     Route: 042
     Dates: start: 20170420, end: 20170420
  17. CHLORPHENAMINE [Concomitant]
     Active Substance: CHLORPHENIRAMINE MALEATE
     Dosage: 5 MG, UNK
     Route: 042
     Dates: start: 20170504, end: 20170504
  18. FUROSEMIDE. [Concomitant]
     Active Substance: FUROSEMIDE
     Dosage: 20 MG, UNK
     Route: 042
     Dates: start: 20170105, end: 20170105
  19. HYDROCORTISONE. [Concomitant]
     Active Substance: HYDROCORTISONE
     Dosage: 100 MG, UNK
     Route: 042
     Dates: start: 20160922, end: 20160922
  20. HYDROCORTISONE. [Concomitant]
     Active Substance: HYDROCORTISONE
     Dosage: 100 MG, UNK
     Route: 042
     Dates: start: 20161027, end: 20161027
  21. OXYGEN. [Concomitant]
     Active Substance: OXYGEN
     Indication: PROPHYLAXIS
     Dosage: 5 L, UNK
     Route: 045
     Dates: start: 20161211
  22. ZOLPIDEM [Concomitant]
     Active Substance: ZOLPIDEM\ZOLPIDEM TARTRATE
     Dosage: 10 MG, UNK
     Route: 048
     Dates: start: 20161212, end: 20161212
  23. CHLORPHENAMINE [Concomitant]
     Active Substance: CHLORPHENIRAMINE MALEATE
     Dosage: 5 MG, UNK
     Route: 042
     Dates: start: 20170119, end: 20170119
  24. FUROSEMIDE. [Concomitant]
     Active Substance: FUROSEMIDE
     Dosage: 20 MG, UNK
     Route: 042
     Dates: start: 20161222, end: 20161222
  25. HYDROXYZINE HYDROCHLORIDE. [Concomitant]
     Active Substance: HYDROXYZINE HYDROCHLORIDE
     Indication: BACK PAIN
     Dosage: 25 MG, UNK
     Route: 048
  26. HYDROXYZINE HYDROCHLORIDE. [Concomitant]
     Active Substance: HYDROXYZINE HYDROCHLORIDE
     Indication: DERMATITIS
  27. CHLORPHENAMINE [Concomitant]
     Active Substance: CHLORPHENIRAMINE MALEATE
     Dosage: 5 MG, UNK
     Route: 042
     Dates: start: 20170309, end: 20170309
  28. FUROSEMIDE. [Concomitant]
     Active Substance: FUROSEMIDE
     Indication: PROPHYLAXIS
     Dosage: 20 MG, UNK
     Route: 042
     Dates: start: 20160922, end: 20160922
  29. HYDROCORTISONE. [Concomitant]
     Active Substance: HYDROCORTISONE
     Dosage: 100 MG, UNK
     Route: 042
     Dates: start: 20160901, end: 20160901
  30. FENOTEROL HYDROBROMIDE [Concomitant]
     Active Substance: FENOTEROL HYDROBROMIDE
     Indication: BACK PAIN
     Dosage: 2 DF (2 PUFF), UNK
     Route: 065
     Dates: start: 20161229, end: 20170112
  31. VITA-B6 [Concomitant]
     Dosage: 50 MG, UNK
     Route: 048
  32. FUROSEMIDE. [Concomitant]
     Active Substance: FUROSEMIDE
     Dosage: 40 MG, UNK
     Route: 048
     Dates: start: 20161211, end: 20161213
  33. FUROSEMIDE. [Concomitant]
     Active Substance: FUROSEMIDE
     Dosage: 40 MG, UNK
     Route: 042
     Dates: start: 20170504, end: 20170504
  34. HYDROCORTISONE. [Concomitant]
     Active Substance: HYDROCORTISONE
     Dosage: 100 MG, UNK
     Route: 042
     Dates: start: 20160804, end: 20160804
  35. HYDROCORTISONE. [Concomitant]
     Active Substance: HYDROCORTISONE
     Dosage: 100 MG, UNK
     Route: 042
     Dates: start: 20160818, end: 20160818
  36. HYDROCORTISONE. [Concomitant]
     Active Substance: HYDROCORTISONE
     Dosage: 100 MG, UNK
     Route: 042
     Dates: start: 20170202, end: 20170202
  37. EXJADE [Suspect]
     Active Substance: DEFERASIROX
     Dosage: 1500 MG, QD
     Route: 048
     Dates: start: 20160901, end: 20170601
  38. CHLORPHENAMINE [Concomitant]
     Active Substance: CHLORPHENIRAMINE MALEATE
     Dosage: 5 MG, UNK
     Route: 042
     Dates: start: 20170105, end: 20170105
  39. FUROSEMIDE. [Concomitant]
     Active Substance: FUROSEMIDE
     Dosage: 20 MG, UNK
     Route: 042
     Dates: start: 20161201, end: 20161201
  40. HYDROCORTISONE. [Concomitant]
     Active Substance: HYDROCORTISONE
     Dosage: 100 MG, UNK
     Route: 042
     Dates: start: 20170406, end: 20170406
  41. HYDROCORTISONE. [Concomitant]
     Active Substance: HYDROCORTISONE
     Dosage: 100 MG, UNK
     Route: 042
     Dates: start: 20170420, end: 20170420
  42. IOHEXOL [Concomitant]
     Active Substance: IOHEXOL
     Indication: PRODUCT USED FOR UNKNOWN INDICATION
     Dosage: 100 ML, UNK
     Route: 042
  43. CHLORPHENAMINE [Concomitant]
     Active Substance: CHLORPHENIRAMINE MALEATE
     Dosage: 5 MG, UNK
     Route: 042
     Dates: start: 20170223, end: 20170223
  44. CHLORPHENAMINE [Concomitant]
     Active Substance: CHLORPHENIRAMINE MALEATE
     Dosage: 5 MG, UNK
     Route: 042
     Dates: start: 20170323, end: 20170323
  45. DIMETHICONE. [Concomitant]
     Active Substance: DIMETHICONE
     Indication: PROPHYLAXIS
     Dosage: 40 MG, UNK
     Route: 048
     Dates: start: 20161229, end: 20170112
  46. HYDROCORTISONE. [Concomitant]
     Active Substance: HYDROCORTISONE
     Dosage: 100 MG, UNK
     Route: 042
     Dates: start: 20170105, end: 20170105
  47. HYDROCORTISONE. [Concomitant]
     Active Substance: HYDROCORTISONE
     Dosage: 100 MG, UNK
     Route: 042
     Dates: start: 20170223, end: 20170223
  48. HYDROCORTISONE. [Concomitant]
     Active Substance: HYDROCORTISONE
     Dosage: 100 MG, UNK
     Route: 042
     Dates: start: 20170504, end: 20170504
  49. METHYLPREDNISOLONE. [Concomitant]
     Active Substance: METHYLPREDNISOLONE
     Indication: MYELODYSPLASTIC SYNDROME
     Dosage: 4 MG, UNK
     Route: 048
     Dates: start: 20160121
  50. FENOTEROL HYDROBROMIDE [Concomitant]
     Active Substance: FENOTEROL HYDROBROMIDE
     Indication: DYSPNOEA
  51. ZOLPIDEM [Concomitant]
     Active Substance: ZOLPIDEM\ZOLPIDEM TARTRATE
     Indication: INSOMNIA
     Dosage: 10 MG, UNK
     Route: 048
     Dates: start: 20161119, end: 20161119

REACTIONS (18)
  - Pathological fracture [Recovered/Resolved]
  - Osteoporosis [Not Recovered/Not Resolved]
  - Back pain [Not Recovered/Not Resolved]
  - Respiratory failure [Recovering/Resolving]
  - Hypokalaemia [Recovering/Resolving]
  - Acute pulmonary oedema [Recovering/Resolving]
  - Myelopathy [Not Recovered/Not Resolved]
  - Hyperglycaemia [Unknown]
  - Traumatic arthropathy [Not Recovered/Not Resolved]
  - Back pain [Recovered/Resolved]
  - Osteoporosis [Recovered/Resolved]
  - Traumatic arthropathy [Recovered/Resolved]
  - Constipation [Unknown]
  - Spinal osteoarthritis [Not Recovered/Not Resolved]
  - Back pain [Recovered/Resolved]
  - Pathological fracture [Not Recovered/Not Resolved]
  - Spinal compression fracture [Unknown]
  - Muscle spasms [Recovered/Resolved]

NARRATIVE: CASE EVENT DATE: 20160720
